FAERS Safety Report 6197364-8 (Version None)
Quarter: 2009Q2

REPORT INFORMATION
  Report Type: 
  Country: None (occurrence: None)
  Receive Date: 20090518
  Receipt Date: 20090501
  Transmission Date: 20091009
  Serious: Yes (Death)
  Sender: FDA-Public Use
  Company Number: 2009-061

PATIENT
  Age: 55 Year
  Sex: Male

DRUGS (7)
  1. FAZACLO ODT [Suspect]
     Dosage: 400 MG QHS PO
     Route: 048
     Dates: start: 20070725, end: 20090406
  2. ADVAIR HFA [Concomitant]
  3. SPIRIVA [Concomitant]
  4. ZYPREXA [Concomitant]
  5. NICOTINE [Concomitant]
  6. ALBUTEROL [Concomitant]
  7. SERTRALINE HCL [Concomitant]

REACTIONS (1)
  - DEATH [None]
